FAERS Safety Report 8758425 (Version 1)
Quarter: 2012Q4

REPORT INFORMATION
  Report Type: Spontaneous
  Country: US (occurrence: None)
  Receive Date: 20120828
  Receipt Date: 20120828
  Transmission Date: 20130627
  Serious: Yes (Other)
  Sender: FDA-Public Use
  Company Number: None

PATIENT
  Age: 77 Year
  Sex: Male
  Weight: 60.33 kg

DRUGS (1)
  1. REUMOFAN [Suspect]
     Indication: BACK PAIN
     Dosage: 1 tablet twice daily po
     Route: 048
     Dates: start: 20120812, end: 20120824

REACTIONS (2)
  - Abdominal pain [None]
  - Dizziness [None]
